FAERS Safety Report 4534461-4 (Version None)
Quarter: 2004Q4

REPORT INFORMATION
  Report Type: 
  Country: None (occurrence: None)
  Receive Date: 20041214
  Receipt Date: 20041026
  Transmission Date: 20050328
  Serious: No
  Sender: FDA-Public Use
  Company Number: 2004241529US

PATIENT
  Sex: Female
  Weight: 95.2 kg

DRUGS (6)
  1. BEXTRA [Suspect]
     Dosage: ORAL
     Route: 048
     Dates: end: 20041001
  2. LISINOPRIL [Concomitant]
  3. LEVOXYL [Concomitant]
  4. ASPIRIN [Concomitant]
  5. FOSAMAX [Concomitant]
  6. TYLENOL ESTRA-STRENGTH [Concomitant]

REACTIONS (3)
  - DRUG ERUPTION [None]
  - PRURITUS [None]
  - SINUS CONGESTION [None]
